FAERS Safety Report 8470568-7 (Version None)
Quarter: 2012Q2

REPORT INFORMATION
  Report Type: 
  Country: None (occurrence: None)
  Receive Date: 20120627
  Receipt Date: 20120622
  Transmission Date: 20120825
  Serious: Yes (Other)
  Sender: FDA-Public Use
  Company Number: PHHY2012BR054450

PATIENT
  Age: 82 Year
  Sex: Female

DRUGS (1)
  1. AMLODIPINE [Suspect]
     Indication: HYPERTENSION
     Dosage: 1 TABLET (160/5 MG) DAILY

REACTIONS (6)
  - MONOPARESIS [None]
  - DYSPHONIA [None]
  - AMNESIA [None]
  - SPEECH DISORDER [None]
  - NEOPLASM [None]
  - DYSKINESIA [None]
